FAERS Safety Report 14183038 (Version 1)
Quarter: 2017Q4

REPORT INFORMATION
  Report Type: Spontaneous
  Country: ZA (occurrence: ZA)
  Receive Date: 20171113
  Receipt Date: 20171113
  Transmission Date: 20180321
  Serious: Yes (Other)
  Sender: FDA-Public Use
  Company Number: ZA-PFIZER INC-2017480768

PATIENT
  Age: 45 Year
  Sex: Female
  Weight: 67 kg

DRUGS (2)
  1. SALAZOPYRIN [Suspect]
     Active Substance: SULFASALAZINE
     Dosage: 1.5 G, 2X/DAY
     Dates: start: 2015
  2. ARAVA [Suspect]
     Active Substance: LEFLUNOMIDE
     Dosage: UNK

REACTIONS (5)
  - Blood creatinine increased [Unknown]
  - Drug ineffective [Unknown]
  - Interstitial lung disease [Unknown]
  - C-reactive protein increased [Unknown]
  - Bronchiolitis [Unknown]

NARRATIVE: CASE EVENT DATE: 201702
